FAERS Safety Report 9165454 (Version 1)
Quarter: 2013Q2

REPORT INFORMATION
  Report Type: Spontaneous
  Country: US (occurrence: None)
  Receive Date: 20130314
  Receipt Date: 20130314
  Transmission Date: 20140414
  Serious: Yes (Hospitalization)
  Sender: FDA-Public Use
  Company Number: None

PATIENT
  Age: 66 Year
  Sex: Male
  Weight: 103.6 kg

DRUGS (2)
  1. CARFILZOMIB [Suspect]
     Indication: WALDENSTROM^S MACROGLOBULINAEMIA
     Route: 042
     Dates: start: 20121210, end: 20130219
  2. RITUXIMAB/DOXAMETHASONE [Suspect]
     Route: 042
     Dates: start: 20121210, end: 20130219

REACTIONS (5)
  - Heart rate increased [None]
  - Atrial flutter [None]
  - Ventricular tachycardia [None]
  - Dyspnoea [None]
  - Echocardiogram abnormal [None]
